FAERS Safety Report 18194129 (Version 3)
Quarter: 2020Q4

REPORT INFORMATION
  Report Type: Spontaneous
  Country: US (occurrence: US)
  Receive Date: 20200825
  Receipt Date: 20201111
  Transmission Date: 20210113
  Serious: No
  Sender: FDA-Public Use
  Company Number: US-VERTEX PHARMACEUTICALS-2020-016794

PATIENT
  Sex: Male

DRUGS (3)
  1. TRIKAFTA [Suspect]
     Active Substance: ELEXACAFTOR\IVACAFTOR\TEZACAFTOR
     Dosage: DOSE REDUCED (HOLD BLUE TABS)
     Route: 048
     Dates: start: 2020
  2. PULMOZYME [Concomitant]
     Active Substance: DORNASE ALFA
     Dosage: 2.5 MILLIGRAM
  3. TRIKAFTA [Suspect]
     Active Substance: ELEXACAFTOR\IVACAFTOR\TEZACAFTOR
     Indication: CYSTIC FIBROSIS
     Dosage: 100MG ELEXACAFTOR/50MG TEZACAFTOR/75MG IVACAFTOR AND 150MG IVACAFTOR, BID
     Route: 048
     Dates: start: 20191219, end: 2020

REACTIONS (3)
  - Depressed mood [Not Recovered/Not Resolved]
  - COVID-19 [Not Recovered/Not Resolved]
  - Hepatic enzyme increased [Recovered/Resolved]

NARRATIVE: CASE EVENT DATE: 2020
